FAERS Safety Report 10680844 (Version 3)
Quarter: 2015Q1

REPORT INFORMATION
  Report Type: Spontaneous
  Country: FR (occurrence: FR)
  Receive Date: 20141229
  Receipt Date: 20150112
  Transmission Date: 20150720
  Serious: Yes (Other)
  Sender: FDA-Public Use
  Company Number: FR-GILEAD-2014-0126999

PATIENT
  Sex: Female

DRUGS (6)
  1. REFRESH                            /00007001/ [Concomitant]
  2. SOVALDI [Suspect]
     Active Substance: SOFOSBUVIR
     Indication: PRODUCT USED FOR UNKNOWN INDICATION
     Dosage: UNK
     Route: 065
     Dates: start: 20141118
  3. DACLATASVIR [Concomitant]
     Active Substance: DACLATASVIR
     Dosage: UNK
     Dates: start: 20141118
  4. DACRYOSERUM                        /00951201/ [Concomitant]
  5. CROMEDIL [Concomitant]
  6. ESTREVA [Concomitant]
     Active Substance: ESTRADIOL

REACTIONS (23)
  - Amnesia [Unknown]
  - Hot flush [Unknown]
  - Face oedema [Unknown]
  - Eye oedema [Unknown]
  - Cognitive disorder [Unknown]
  - Eye irritation [Unknown]
  - Conjunctivitis bacterial [Unknown]
  - Conjunctivitis allergic [Unknown]
  - Pruritus [Unknown]
  - Chest pain [Unknown]
  - Thinking abnormal [Unknown]
  - Inflammation [Unknown]
  - Eye pain [Unknown]
  - Disturbance in attention [Unknown]
  - Fatigue [Unknown]
  - Chills [Unknown]
  - Dry eye [Unknown]
  - Hypersensitivity [Unknown]
  - Eye disorder [Unknown]
  - Abnormal behaviour [Unknown]
  - Balance disorder [Unknown]
  - Affective disorder [Unknown]
  - Chalazion [Unknown]
